FAERS Safety Report 18868352 (Version 2)
Quarter: 2021Q1

REPORT INFORMATION
  Report Type: Spontaneous
  Country: JP (occurrence: JP)
  Receive Date: 20210209
  Receipt Date: 20210226
  Transmission Date: 20210420
  Serious: Yes (Life-Threatening)
  Sender: FDA-Public Use
  Company Number: JP-JNJFOC-20210214244

PATIENT
  Age: 61 Year
  Sex: Male

DRUGS (12)
  1. JANUVIA [Concomitant]
     Active Substance: SITAGLIPTIN PHOSPHATE
     Indication: DIABETES MELLITUS
     Dosage: 50 MILLIGRAM, QD
     Route: 048
     Dates: start: 20191006
  2. GASMOTIN [Concomitant]
     Active Substance: MOSAPRIDE CITRATE
     Indication: DECREASED APPETITE
     Dosage: 1 DOSAGE FORM, TID
     Route: 048
     Dates: start: 20190927
  3. CAMPTO [Concomitant]
     Active Substance: IRINOTECAN
     Indication: RECTAL CANCER
     Dosage: 150 MILLIGRAM, Q2WEEKS
     Route: 041
     Dates: start: 20200511, end: 20200615
  4. TS?1 [Concomitant]
     Active Substance: GIMERACIL\OTERACIL\TEGAFUR
     Indication: RECTAL CANCER
     Dosage: 120 MILLIGRAM, ORAL ADMINISTRATION FOR 2 WEEKS AND REST FOR 2 WEEKS
     Route: 048
     Dates: start: 20200511, end: 20200615
  5. FEBURIC [Concomitant]
     Active Substance: FEBUXOSTAT
     Indication: HYPERURICAEMIA
     Dosage: 10 MILLIGRAM, QD
     Route: 048
     Dates: start: 20200326
  6. BIO?THREE [Concomitant]
     Active Substance: HERBALS
     Indication: RECTAL CANCER
     Dosage: 1 DOSAGE FORM, TID
     Route: 048
     Dates: start: 20190601
  7. CRAVIT [Concomitant]
     Active Substance: LEVOFLOXACIN
     Indication: C-REACTIVE PROTEIN INCREASED
     Dosage: 500 MILLIGRAM, QD
     Route: 048
     Dates: start: 20200622, end: 20200628
  8. NAUZELIN [Concomitant]
     Active Substance: DOMPERIDONE
     Indication: NAUSEA
     Dosage: 10 MILLIGRAM, TID
     Route: 048
     Dates: start: 20200511
  9. AVASTIN [Concomitant]
     Active Substance: BEVACIZUMAB
     Indication: RECTAL CANCER
     Dosage: 260 MILLIGRAM, Q2WEEKS
     Route: 041
     Dates: start: 20200511, end: 20200615
  10. HANGESHASHINTO [Concomitant]
     Active Substance: HERBALS
     Indication: DIARRHOEA
     Dosage: 2.5 GRAM, TID
     Route: 048
     Dates: start: 20200525
  11. CANAGLIFLOZIN [Suspect]
     Active Substance: CANAGLIFLOZIN
     Indication: DIABETES MELLITUS
     Dosage: 100 MILLIGRAM, QD
     Route: 048
     Dates: start: 20200326, end: 20200622
  12. LOPEMIN [Concomitant]
     Indication: DIARRHOEA
     Dosage: 1 MILLIGRAM, TID
     Route: 048
     Dates: start: 20200511, end: 20200629

REACTIONS (1)
  - Fournier^s gangrene [Recovered/Resolved with Sequelae]

NARRATIVE: CASE EVENT DATE: 20200622
